FAERS Safety Report 22160967 (Version 1)
Quarter: 2023Q1

REPORT INFORMATION
  Report Type: Spontaneous
  Country: US (occurrence: None)
  Receive Date: 20230330
  Receipt Date: 20230330
  Transmission Date: 20230418
  Serious: No
  Sender: FDA-Public Use
  Company Number: None

PATIENT
  Sex: Female

DRUGS (1)
  1. PROLIA [Suspect]
     Active Substance: DENOSUMAB
     Route: 058
     Dates: start: 202204

REACTIONS (4)
  - Middle ear effusion [None]
  - Lumbar radiculopathy [None]
  - Sacral radiculopathy [None]
  - Spinal osteoarthritis [None]
